FAERS Safety Report 17813726 (Version 2)
Quarter: 2021Q2

REPORT INFORMATION
  Report Type: Spontaneous
  Country: AR (occurrence: AR)
  Receive Date: 20200521
  Receipt Date: 20210506
  Transmission Date: 20210716
  Serious: Yes (Hospitalization)
  Sender: FDA-Public Use
  Company Number: NVSC2020AR130814

PATIENT
  Sex: Female

DRUGS (4)
  1. TEGRETOL [Suspect]
     Active Substance: CARBAMAZEPINE
     Dosage: 4 DF, QD
     Route: 065
  2. TEGRETOL [Suspect]
     Active Substance: CARBAMAZEPINE
     Indication: EPILEPSY
     Dosage: 1 AND A HALF, QD
     Route: 065
  3. TEGRETOL [Suspect]
     Active Substance: CARBAMAZEPINE
     Dosage: 3 DF, QD
     Route: 065
  4. ACTINERVAL [Concomitant]
     Indication: PRODUCT USED FOR UNKNOWN INDICATION
     Dosage: 3 DF, QD
     Route: 065

REACTIONS (6)
  - Loss of consciousness [Unknown]
  - Blood pressure decreased [Recovered/Resolved]
  - Off label use [Unknown]
  - Nervous system disorder [Unknown]
  - Wrong technique in product usage process [Unknown]
  - Malaise [Unknown]
